FAERS Safety Report 14652723 (Version 2)
Quarter: 2018Q2

REPORT INFORMATION
  Report Type: Spontaneous
  Country: DE (occurrence: DE)
  Receive Date: 20180319
  Receipt Date: 20180504
  Transmission Date: 20180711
  Serious: Yes (Other)
  Sender: FDA-Public Use
  Company Number: DE-ROCHE-2086874

PATIENT
  Age: 54 Year
  Sex: Male

DRUGS (19)
  1. METHOTREXAT [Suspect]
     Active Substance: METHOTREXATE
     Indication: ANGIOCENTRIC LYMPHOMA
     Dosage: DOSE:4 GRAM(S)/SQUARE METER
     Route: 042
  2. PREDNISON [Suspect]
     Active Substance: PREDNISONE
     Indication: ANGIOCENTRIC LYMPHOMA
     Dosage: ALTERNATING CYCLES
     Route: 065
  3. CYTARABINE. [Suspect]
     Active Substance: CYTARABINE
     Indication: ANGIOCENTRIC LYMPHOMA
     Dosage: ADMINISTERED  ON DAYS 1 AND 2 DOSE:3 GRAM(S)/SQUARE METER?ON DAY 3
     Route: 037
  4. THIOTEPA. [Suspect]
     Active Substance: THIOTEPA
     Indication: ANGIOCENTRIC LYMPHOMA
     Dosage: DAILY DOSE: 40 MG/M2 MILLIGRAM(S)/SQ. METER EVERY ON DAY 2
     Route: 065
  5. VINCRISTIN [Suspect]
     Active Substance: VINCRISTINE
     Indication: ANGIOCENTRIC LYMPHOMA
     Dosage: FOUR ALTERNATING CYCLES
     Route: 065
  6. DOXORUBICIN [Suspect]
     Active Substance: DOXORUBICIN
     Indication: ANGIOCENTRIC LYMPHOMA
     Dosage: FOUR ALTERNATING CYCLES
     Route: 065
  7. RITUXIMAB. [Suspect]
     Active Substance: RITUXIMAB
     Indication: ANGIOCENTRIC LYMPHOMA
     Dosage: DAILY DOSE: 375 MG/M2 MILLIGRAM(S)/SQ. METER EVERY?DAY 1
     Route: 065
  8. CYTARABINE. [Suspect]
     Active Substance: CYTARABINE
     Indication: ANGIOCENTRIC LYMPHOMA
     Dosage: DAILY DOSE: 3 MG/M2 MILLIGRAM(S)/SQ. METER EVERY DAY?ON DAY 1 AND 2
     Route: 065
  9. CARMUSTINE [Concomitant]
     Active Substance: CARMUSTINE
     Indication: ANGIOCENTRIC LYMPHOMA
     Dosage: 400 MG/M2 ON DAY -5
     Route: 065
  10. RITUXIMAB. [Suspect]
     Active Substance: RITUXIMAB
     Indication: ANGIOCENTRIC LYMPHOMA
     Dosage: RCHOP REGIMEN
     Route: 065
  11. DEXAMETHASONE. [Suspect]
     Active Substance: DEXAMETHASONE
     Indication: ANGIOCENTRIC LYMPHOMA
     Dosage: DAILY DOSE: 4 G GRAM(S) EVERY?ON DAY 3
     Route: 037
  12. DEXAMETHASONE. [Suspect]
     Active Substance: DEXAMETHASONE
     Indication: ANGIOCENTRIC LYMPHOMA
     Dosage: DAILY DOSE: 4 G GRAM(S) EVERY
     Route: 065
  13. ETOPOSIDE. [Concomitant]
     Active Substance: ETOPOSIDE
     Indication: ANGIOCENTRIC LYMPHOMA
     Dosage: 150 MG/M2 ON DAY -5 TO -3
     Route: 065
  14. CYTARABINE. [Suspect]
     Active Substance: CYTARABINE
     Indication: ANGIOCENTRIC LYMPHOMA
     Dosage: DAILY DOSE: 40 MG MILLIGRAM(S) EVERY
     Route: 037
  15. THIOTEPA. [Suspect]
     Active Substance: THIOTEPA
     Indication: ANGIOCENTRIC LYMPHOMA
     Dosage: DAILY DOSE: 40 MG/M2 MILLIGRAM(S)/SQ. METER EVERY
     Route: 065
  16. CYTARABINE. [Suspect]
     Active Substance: CYTARABINE
     Indication: ANGIOCENTRIC LYMPHOMA
     Dosage: DAILY DOSE: 40 MG MILLIGRAM(S) EVERY
     Route: 037
  17. RITUXIMAB. [Suspect]
     Active Substance: RITUXIMAB
     Indication: ANGIOCENTRIC LYMPHOMA
     Dosage: DAILY DOSE: 375 MG/M2 MILLIGRAM(S)/SQ. METER EVERY
     Route: 065
  18. METHOTREXAT [Suspect]
     Active Substance: METHOTREXATE
     Indication: ANGIOCENTRIC LYMPHOMA
     Dosage: DAILY DOSE: 12 MG MILLIGRAM(S) EVERY?ON DAY 1
     Route: 037
  19. CYCLOPHOSPHAMIDE. [Suspect]
     Active Substance: CYCLOPHOSPHAMIDE
     Indication: ANGIOCENTRIC LYMPHOMA
     Dosage: FOUR ALTERNATING CYCLES
     Route: 065

REACTIONS (4)
  - Product use in unapproved indication [Unknown]
  - Febrile neutropenia [Unknown]
  - Off label use [Unknown]
  - Acute kidney injury [Recovered/Resolved]
